FAERS Safety Report 9696759 (Version 1)
Quarter: 2013Q4

REPORT INFORMATION
  Report Type: Spontaneous
  Country: US (occurrence: US)
  Receive Date: 20131119
  Receipt Date: 20131119
  Transmission Date: 20140711
  Serious: No
  Sender: FDA-Public Use
  Company Number: US-GILEAD-2007-0014575

PATIENT
  Sex: Female
  Weight: 50.8 kg

DRUGS (10)
  1. LETAIRIS [Suspect]
     Indication: PULMONARY ARTERIAL HYPERTENSION
     Route: 048
  2. REVATIO [Concomitant]
     Route: 048
  3. OXYGEN [Concomitant]
     Dosage: UD
     Route: 045
  4. EFFEXOR [Concomitant]
     Dosage: UD
     Route: 048
  5. VERAPAMIL [Concomitant]
     Dosage: UD
     Route: 048
  6. LEVOTHYROXINE [Concomitant]
     Dosage: UD
     Route: 048
  7. BENICAR [Concomitant]
     Dosage: UD
     Route: 048
  8. ZETIA [Concomitant]
     Dosage: UD
     Route: 048
  9. ALTACE [Concomitant]
     Dosage: UD
     Route: 048
  10. ZOCOR [Concomitant]
     Dosage: UD
     Route: 048

REACTIONS (1)
  - Local swelling [Recovered/Resolved]
